FAERS Safety Report 10300643 (Version 3)
Quarter: 2014Q3

REPORT INFORMATION
  Report Type: Report from Study
  Country: MX (occurrence: MX)
  Receive Date: 20140714
  Receipt Date: 20140916
  Transmission Date: 20150326
  Serious: Yes (Disabling)
  Sender: FDA-Public Use
  Company Number: MX-ROCHE-1394788

PATIENT
  Age: 46 Year
  Sex: Female
  Weight: 70 kg

DRUGS (2)
  1. ROACTEMRA [Suspect]
     Active Substance: TOCILIZUMAB
     Indication: RHEUMATOID ARTHRITIS
     Route: 042
     Dates: start: 201307
  2. ARTRENE (MEXICO) [Concomitant]
     Indication: RHEUMATOID ARTHRITIS
     Dosage: ONLY IN CASE OF PAIN
     Route: 048

REACTIONS (12)
  - Productive cough [Recovering/Resolving]
  - Asthenia [Not Recovered/Not Resolved]
  - Throat tightness [Recovering/Resolving]
  - Muscle rigidity [Unknown]
  - Aphthous stomatitis [Recovering/Resolving]
  - Influenza [Recovering/Resolving]
  - Dry eye [Not Recovered/Not Resolved]
  - Inflammation [Not Recovered/Not Resolved]
  - Foot deformity [Not Recovered/Not Resolved]
  - Stomatitis [Recovered/Resolved]
  - Pain [Unknown]
  - Cough [Recovering/Resolving]

NARRATIVE: CASE EVENT DATE: 201402
